FAERS Safety Report 4451539-4 (Version None)
Quarter: 2004Q3

REPORT INFORMATION
  Report Type: 
  Country: None (occurrence: None)
  Receive Date: 20040915
  Receipt Date: 20040831
  Transmission Date: 20050211
  Serious: Yes (Hospitalization)
  Sender: FDA-Public Use
  Company Number: 200407300

PATIENT
  Age: 73 Year
  Sex: Male
  Weight: 76.2043 kg

DRUGS (6)
  1. BOTOX [Suspect]
     Indication: BLEPHAROSPASM
     Dosage: 60 UNITS PRN IM
     Route: 030
     Dates: end: 20040728
  2. ATENOLOL [Concomitant]
  3. MAXZIDE [Concomitant]
  4. MATRIX [Concomitant]
  5. CELEBREX [Concomitant]
  6. TYLENOL [Concomitant]

REACTIONS (10)
  - ABDOMINAL DISTENSION [None]
  - ANOREXIA [None]
  - INFLUENZA LIKE ILLNESS [None]
  - LACRIMATION INCREASED [None]
  - NASAL CONGESTION [None]
  - NAUSEA [None]
  - PHARYNGOLARYNGEAL PAIN [None]
  - PYREXIA [None]
  - RENAL FAILURE [None]
  - WEIGHT DECREASED [None]
